FAERS Safety Report 4471548-9 (Version None)
Quarter: 2004Q4

REPORT INFORMATION
  Report Type: 
  Country: None (occurrence: None)
  Receive Date: 20041006
  Receipt Date: 20040923
  Transmission Date: 20050328
  Serious: Yes (Other)
  Sender: FDA-Public Use
  Company Number: HQWYE251924SEP04

PATIENT
  Age: 4 Year
  Sex: Male
  Weight: 15.89 kg

DRUGS (2)
  1. PHENERGAN [Suspect]
     Indication: SEDATION
     Dosage: 50 MG 1X PER 1 DAY, ORAL
     Route: 048
     Dates: start: 20040921, end: 20040921
  2. VALIUM [Concomitant]

REACTIONS (10)
  - ABNORMAL BEHAVIOUR [None]
  - ACCIDENTAL OVERDOSE [None]
  - AGITATION [None]
  - CONFUSIONAL STATE [None]
  - DYSKINESIA [None]
  - INCOHERENT [None]
  - INCONTINENCE [None]
  - MEDICATION ERROR [None]
  - SPEECH DISORDER [None]
  - URINARY INCONTINENCE [None]
